FAERS Safety Report 18950147 (Version 1)
Quarter: 2021Q1

REPORT INFORMATION
  Report Type: Spontaneous
  Country: US (occurrence: US)
  Receive Date: 20210228
  Receipt Date: 20210228
  Transmission Date: 20210420
  Serious: No
  Sender: FDA-Public Use
  Company Number: US-ASTRAZENECA-2021A035385

PATIENT
  Age: 70 Year
  Sex: Male

DRUGS (2)
  1. FARXIGA [Suspect]
     Active Substance: DAPAGLIFLOZIN PROPANEDIOL
     Indication: CARDIAC FAILURE CONGESTIVE
     Dosage: 10.0MG UNKNOWN
     Route: 048
     Dates: start: 202101
  2. FARXIGA [Suspect]
     Active Substance: DAPAGLIFLOZIN PROPANEDIOL
     Indication: ISCHAEMIC CARDIOMYOPATHY
     Dosage: 10.0MG UNKNOWN
     Route: 048
     Dates: start: 202101

REACTIONS (2)
  - Hypoaesthesia [Unknown]
  - Hypotension [Unknown]
